FAERS Safety Report 9457814 (Version 1)
Quarter: 2013Q3

REPORT INFORMATION
  Report Type: Report from Study
  Country: US (occurrence: US)
  Receive Date: 20130814
  Receipt Date: 20130814
  Transmission Date: 20140515
  Serious: No
  Sender: FDA-Public Use
  Company Number: PHEH2013US016835

PATIENT
  Sex: Male

DRUGS (11)
  1. TASIGNA [Suspect]
     Indication: PROSTATE CANCER
     Dosage: 300 MG, BID
  2. ALLOPURINOL [Concomitant]
  3. DOXAZOSIN MESYLATE [Concomitant]
  4. LEVOTHYROXINE SODIUM [Concomitant]
  5. INDAPAMIDE [Concomitant]
  6. LISINOPRIL [Concomitant]
  7. CENTRUM [Concomitant]
  8. ASPIRIN [Concomitant]
  9. PRAVASTATIN SODIUM [Concomitant]
  10. GLIPIZIDE [Concomitant]
  11. JANUVIA [Concomitant]

REACTIONS (2)
  - Arthralgia [Unknown]
  - Eye pain [Unknown]
